FAERS Safety Report 9456409 (Version 1)
Quarter: 2013Q3

REPORT INFORMATION
  Report Type: Spontaneous
  Country: NO (occurrence: None)
  Receive Date: 20130809
  Receipt Date: 20130809
  Transmission Date: 20140515
  Serious: Yes (Hospitalization)
  Sender: FDA-Public Use
  Company Number: 2013-3255

PATIENT
  Age: 60 Year
  Sex: Female

DRUGS (5)
  1. AZZALURE (BOTULINUM TOXIN TYPE A) (BOTULINUM TOXIN TYPE A) [Suspect]
     Indication: SKIN WRINKLING
     Dosage: 1 IN 1 CYCLE(S)
     Dates: start: 20130620, end: 20130620
  2. AZZALURE (BOTULINUM TOXIN TYPE A) (BOTULINUM TOXIN TYPE A) [Suspect]
     Indication: SKIN WRINKLING
     Dosage: 1 IN 1 CYCLE(S)
     Dates: start: 20130620, end: 20130620
  3. AZZALURE (BOTULINUM TOXIN TYPE A) (BOTULINUM TOXIN TYPE A) [Suspect]
     Indication: OFF LABEL USE
     Dosage: 1 IN 1 CYCLE(S)
     Dates: start: 20130620, end: 20130620
  4. RESTYLANE [Suspect]
     Indication: SKIN COSMETIC PROCEDURE
     Dosage: 0.6ML (0.3 ML, ONCE)
     Dates: start: 20130620, end: 20130620
  5. RESTYLANE [Suspect]
     Indication: SKIN WRINKLING
     Dosage: 2ML (2 ML, ONCE)
     Dates: start: 20130620, end: 20130620

REACTIONS (2)
  - Skin infection [None]
  - Furuncle [None]
